FAERS Safety Report 16381491 (Version 1)
Quarter: 2019Q2

REPORT INFORMATION
  Report Type: Spontaneous
  Country: FR (occurrence: FR)
  Receive Date: 20190603
  Receipt Date: 20190603
  Transmission Date: 20190711
  Serious: Yes (Hospitalization)
  Sender: FDA-Public Use
  Company Number: FR-TEVA-2019-FR-1056648

PATIENT
  Age: 78 Year
  Sex: Female
  Weight: 83 kg

DRUGS (16)
  1. KARDEGIC [Concomitant]
     Active Substance: ASPIRIN DL-LYSINE
  2. PARACETAMOL [Concomitant]
     Active Substance: ACETAMINOPHEN
  3. METFORMINE [Suspect]
     Active Substance: METFORMIN HYDROCHLORIDE
     Indication: TYPE 2 DIABETES MELLITUS
     Route: 048
     Dates: end: 20180217
  4. TRAMADOL BASE [Concomitant]
     Active Substance: TRAMADOL
  5. LASILIX [Suspect]
     Active Substance: FUROSEMIDE
     Indication: HYPERTENSION
     Dosage: 165 MILLIGRAM DAILY;
     Route: 048
     Dates: start: 20180213
  6. COAPROVEL 300 MG/25 MG, COMPRIM? PELLICUL? [Suspect]
     Active Substance: HYDROCHLOROTHIAZIDE\IRBESARTAN
     Indication: HYPERTENSION
     Dosage: 1 DOSAGE FORMS DAILY; 300 MG/25 MG
     Route: 048
     Dates: start: 20180213, end: 20180217
  7. LYRICA [Concomitant]
     Active Substance: PREGABALIN
  8. NOVONORM [Suspect]
     Active Substance: REPAGLINIDE
     Indication: TYPE 2 DIABETES MELLITUS
     Route: 048
     Dates: end: 20180217
  9. AVAMYS [Suspect]
     Active Substance: FLUTICASONE FUROATE
     Indication: RHINITIS ALLERGIC
     Route: 055
     Dates: end: 20180217
  10. JANUVIA [Suspect]
     Active Substance: SITAGLIPTIN PHOSPHATE
     Indication: TYPE 2 DIABETES MELLITUS
     Route: 048
     Dates: end: 20180217
  11. TIORFAN [Concomitant]
     Active Substance: RACECADOTRIL
  12. INEGY [Concomitant]
     Active Substance: EZETIMIBE\SIMVASTATIN
  13. EUPANTOL [Concomitant]
     Active Substance: PANTOPRAZOLE SODIUM
  14. HUMALOG [Concomitant]
     Active Substance: INSULIN LISPRO
  15. LEVEMIR [Concomitant]
     Active Substance: INSULIN DETEMIR
  16. TEMERIT [Concomitant]
     Active Substance: NEBIVOLOL

REACTIONS (2)
  - Acute kidney injury [Recovered/Resolved]
  - Anuria [Recovered/Resolved]

NARRATIVE: CASE EVENT DATE: 20180214
